FAERS Safety Report 9770979 (Version 1)
Quarter: 2013Q4

REPORT INFORMATION
  Report Type: Spontaneous
  Country: CH (occurrence: CH)
  Receive Date: 20131218
  Receipt Date: 20131218
  Transmission Date: 20140711
  Serious: Yes (Other)
  Sender: FDA-Public Use
  Company Number: ALCN2013CH006159

PATIENT
  Sex: Male

DRUGS (2)
  1. AZOPT [Suspect]
     Indication: GLAUCOMA
     Dosage: 1 DF, BID
     Route: 047
  2. XALATAN [Suspect]
     Dosage: 1 DF, QD
     Route: 047

REACTIONS (4)
  - Cheyne-Stokes respiration [Not Recovered/Not Resolved]
  - Respiratory alkalosis [Not Recovered/Not Resolved]
  - Muscle spasms [Not Recovered/Not Resolved]
  - Overdose [Unknown]
